FAERS Safety Report 10274045 (Version 3)
Quarter: 2014Q3

REPORT INFORMATION
  Report Type: Report from Study
  Country: KR (occurrence: KR)
  Receive Date: 20140702
  Receipt Date: 20140714
  Transmission Date: 20150326
  Serious: Yes (Hospitalization)
  Sender: FDA-Public Use
  Company Number: KR-PFIZER INC-2014133642

PATIENT
  Age: 74 Year
  Sex: Female
  Weight: 49 kg

DRUGS (8)
  1. CRIZOTINIB [Suspect]
     Active Substance: CRIZOTINIB
     Indication: NON-SMALL CELL LUNG CANCER
     Dosage: 250 MG, 2X/DAY
     Route: 048
     Dates: start: 20110923, end: 20140513
  2. MAGNESIUM OXIDE. [Concomitant]
     Active Substance: MAGNESIUM OXIDE
     Indication: CONSTIPATION
     Dosage: UNK
     Dates: start: 20130322
  3. FAMOTIDINE. [Concomitant]
     Active Substance: FAMOTIDINE
     Indication: PAIN
     Dosage: UNK
     Dates: start: 20120718
  4. NORTRIPTYLINE [Concomitant]
     Active Substance: NORTRIPTYLINE
     Indication: ARTHRALGIA
     Dosage: UNK
     Dates: start: 20140122
  5. THEOBROMINE [Concomitant]
     Active Substance: THEOBROMINE
     Indication: COUGH
     Dosage: UNK
     Dates: start: 20111205
  6. GINKGO BILOBA [Concomitant]
     Active Substance: GINKGO
     Indication: ARTHRALGIA
     Dosage: UNK
     Dates: start: 20140122
  7. MELOXICAM. [Concomitant]
     Active Substance: MELOXICAM
     Indication: PAIN
     Dosage: UNK
     Dates: start: 20120718
  8. METOCLOPRAMIDE. [Concomitant]
     Active Substance: METOCLOPRAMIDE
     Indication: NAUSEA
     Dosage: UNK
     Dates: start: 20130705

REACTIONS (1)
  - Vertebral column mass [Recovering/Resolving]

NARRATIVE: CASE EVENT DATE: 20140513
